FAERS Safety Report 4589407-X (Version None)
Quarter: 2005Q1

REPORT INFORMATION
  Report Type: 
  Country: None (occurrence: None)
  Receive Date: 20050216
  Receipt Date: 20050207
  Transmission Date: 20050727
  Serious: Yes (Hospitalization, Other)
  Sender: FDA-Public Use
  Company Number: 200510535BCC

PATIENT
  Age: 66 Year
  Sex: Female
  Weight: 74.8435 kg

DRUGS (3)
  1. ALEVE [Suspect]
     Indication: BACK PAIN
     Dosage: 440 MG, BID, ORAL
     Route: 048
  2. PREMARINA [Concomitant]
  3. MAXZIDE [Concomitant]

REACTIONS (6)
  - ARTERIOSCLEROSIS [None]
  - ASTHENIA [None]
  - CHILLS [None]
  - EPISTAXIS [None]
  - NIGHT SWEATS [None]
  - RENAL DISORDER [None]
